FAERS Safety Report 8884586 (Version 3)
Quarter: 2012Q4

REPORT INFORMATION
  Report Type: Report from Study
  Country: CA (occurrence: CA)
  Receive Date: 20121102
  Receipt Date: 20121128
  Transmission Date: 20130627
  Serious: No
  Sender: FDA-Public Use
  Company Number: CA-ABBOTT-12P-028-1000331-00

PATIENT
  Age: 29 None
  Sex: Female
  Weight: 89 kg

DRUGS (10)
  1. HUMIRA [Suspect]
     Indication: CROHN^S DISEASE
     Dosage: Loading dose
     Route: 058
     Dates: start: 20121010, end: 20121010
  2. HUMIRA [Suspect]
     Dosage: loading dose
     Route: 058
     Dates: start: 20121024, end: 20121024
  3. HUMIRA [Suspect]
  4. TYLENOL WITH CODEIN #3 [Suspect]
     Indication: RENAL PAIN
     Route: 048
     Dates: start: 20121115, end: 20121116
  5. TRAMADOL [Concomitant]
     Indication: CROHN^S DISEASE
     Route: 048
     Dates: start: 201210
  6. PREDNISONE [Concomitant]
     Indication: CROHN^S DISEASE
     Route: 048
     Dates: start: 201205, end: 20121115
  7. PREDNISONE [Concomitant]
     Route: 048
     Dates: start: 20121116
  8. SEASONALE [Concomitant]
     Indication: CONTRACEPTION
     Route: 048
     Dates: start: 201205
  9. B12 [Concomitant]
     Indication: PRODUCT USED FOR UNKNOWN INDICATION
     Route: 048
     Dates: start: 201205
  10. LORAZEPAM [Concomitant]
     Indication: SLEEP DISORDER THERAPY
     Route: 048
     Dates: start: 201207

REACTIONS (5)
  - Crohn^s disease [Recovering/Resolving]
  - Vomiting [Recovered/Resolved]
  - Renal pain [Recovered/Resolved]
  - Nausea [Not Recovered/Not Resolved]
  - Renal pain [Unknown]
